FAERS Safety Report 25845128 (Version 1)
Quarter: 2025Q3

REPORT INFORMATION
  Report Type: Spontaneous
  Country: US (occurrence: US)
  Receive Date: 20250925
  Receipt Date: 20250925
  Transmission Date: 20251021
  Serious: No
  Sender: ALEXION PHARMACEUTICALS
  Company Number: US-AstraZeneca-CH-00955925AP

PATIENT
  Age: 79 Year
  Sex: Female

DRUGS (1)
  1. SYMBICORT [Suspect]
     Active Substance: BUDESONIDE\FORMOTEROL FUMARATE DIHYDRATE
     Route: 065

REACTIONS (5)
  - Needle issue [Unknown]
  - Hypoacusis [Unknown]
  - Extra dose administered [Unknown]
  - Device delivery system issue [Unknown]
  - Product dose omission issue [Unknown]
